FAERS Safety Report 17637834 (Version 1)
Quarter: 2020Q2

REPORT INFORMATION
  Report Type: Spontaneous
  Country: US (occurrence: US)
  Receive Date: 20200404
  Receipt Date: 20200404
  Transmission Date: 20200713
  Serious: Yes (Hospitalization)
  Sender: FDA-Public Use
  Company Number: None

PATIENT
  Age: 65 Year
  Sex: Male
  Weight: 126.3 kg

DRUGS (1)
  1. CISPLATIN. [Suspect]
     Active Substance: CISPLATIN
     Dates: end: 20200217

REACTIONS (4)
  - Acute myocardial infarction [None]
  - Pyrexia [None]
  - Pulmonary embolism [None]
  - Chills [None]

NARRATIVE: CASE EVENT DATE: 20200227
